FAERS Safety Report 7300679-0 (Version None)
Quarter: 2011Q1

REPORT INFORMATION
  Report Type: 
  Country: None (occurrence: None)
  Receive Date: 20110218
  Receipt Date: 20110203
  Transmission Date: 20110831
  Serious: Yes (Other)
  Sender: FDA-Public Use
  Company Number: CA-CELGENEUS-028-C5013-11020830

PATIENT
  Sex: Male
  Weight: 63.5 kg

DRUGS (5)
  1. DEXAMETHASONE [Suspect]
     Route: 065
     Dates: end: 20101230
  2. ASPIRIN [Concomitant]
     Route: 048
     Dates: start: 20090813, end: 20110105
  3. CC-5013 [Suspect]
     Route: 048
     Dates: end: 20101222
  4. CC-5013 [Suspect]
     Indication: MULTIPLE MYELOMA
     Route: 048
     Dates: start: 20090813
  5. DEXAMETHASONE [Suspect]
     Indication: MULTIPLE MYELOMA
     Route: 065
     Dates: start: 20090813

REACTIONS (1)
  - HEPATIC NEOPLASM MALIGNANT [None]
